FAERS Safety Report 4634173-2 (Version None)
Quarter: 2005Q2

REPORT INFORMATION
  Report Type: 
  Country: None (occurrence: None)
  Receive Date: 20050413
  Receipt Date: 20050406
  Transmission Date: 20051028
  Serious: Yes (Other)
  Sender: FDA-Public Use
  Company Number: 200512814US

PATIENT
  Sex: 0

DRUGS (1)
  1. KETEK [Suspect]
     Dosage: DOSE: UNK

REACTIONS (3)
  - CONTUSION [None]
  - FALL [None]
  - LOSS OF CONSCIOUSNESS [None]
